FAERS Safety Report 9838428 (Version 1)
Quarter: 2014Q1

REPORT INFORMATION
  Report Type: Spontaneous
  Country: GB (occurrence: GB)
  Receive Date: 20140123
  Receipt Date: 20140123
  Transmission Date: 20141002
  Serious: Yes (Other)
  Sender: FDA-Public Use
  Company Number: PHHY2014GB003832

PATIENT
  Age: 78 Year
  Sex: Female
  Weight: 75 kg

DRUGS (16)
  1. ERYTHROMYCIN [Suspect]
     Indication: GASTROINTESTINAL MOTILITY DISORDER
     Dosage: 250 MG, UNK
     Dates: start: 20131216, end: 20131220
  2. OMEPRAZOLE [Interacting]
  3. BISOPROLOL [Interacting]
     Dosage: 7.5 MG, UNK
  4. DEXDOR [Interacting]
     Indication: SEDATION
     Dates: start: 20131218, end: 20131222
  5. PANTOPRAZOLE [Concomitant]
  6. CO-AMOXICLAV [Concomitant]
     Dates: start: 20131210, end: 20131217
  7. ENOXAPARIN [Concomitant]
  8. GABAPENTIN [Concomitant]
     Dosage: 300 MG, BID
  9. PARACETAMOL [Concomitant]
  10. FUROSEMIDE [Concomitant]
     Dosage: 40 MG, BID
  11. PERINDOPRIL [Concomitant]
     Dosage: 4 MG, UNK
  12. RIVAROXABAN [Concomitant]
     Dosage: 15 MG, UNK
  13. LANSOPRAZOLE [Concomitant]
     Dosage: 30 MG, UNK
  14. NORADRENALINE [Concomitant]
  15. PROPOFOL [Concomitant]
  16. REMIFENTANIL [Concomitant]

REACTIONS (4)
  - Alanine aminotransferase increased [Recovered/Resolved]
  - Aspartate aminotransferase increased [Recovered/Resolved]
  - Blood bilirubin increased [Recovered/Resolved]
  - Drug interaction [Unknown]
